FAERS Safety Report 8225835-9 (Version None)
Quarter: 2012Q1

REPORT INFORMATION
  Report Type: 
  Country: None (occurrence: None)
  Receive Date: 20120321
  Receipt Date: 20120315
  Transmission Date: 20120608
  Serious: Yes (Hospitalization)
  Sender: FDA-Public Use
  Company Number: GB-ROCHE-1049700

PATIENT
  Age: 65 Year

DRUGS (1)
  1. AVASTIN [Suspect]
     Indication: PRODUCT USED FOR UNKNOWN INDICATION
     Dosage: (1.25MG/0.05ML)
     Route: 050
     Dates: start: 20120221

REACTIONS (2)
  - ENDOPHTHALMITIS [None]
  - HYPOPYON [None]
